FAERS Safety Report 7296115-3 (Version None)
Quarter: 2011Q1

REPORT INFORMATION
  Report Type: 
  Country: None (occurrence: None)
  Receive Date: 20110204
  Receipt Date: 20110125
  Transmission Date: 20110831
  Serious: Yes (Life-Threatening)
  Sender: FDA-Public Use
  Company Number: MSTR-NO-1102S-0058

PATIENT
  Age: 68 Year
  Sex: Female

DRUGS (1)
  1. METASTRON [Suspect]
     Indication: METASTATIC PAIN
     Dosage: NR, SINGLE DOSE, IV
     Route: 042
     Dates: start: 20091006, end: 20091006

REACTIONS (5)
  - HOT FLUSH [None]
  - FEELING ABNORMAL [None]
  - METASTATIC PAIN [None]
  - ANAEMIA [None]
  - NEOPLASM MALIGNANT [None]
